FAERS Safety Report 9449811 (Version 2)
Quarter: 2013Q3

REPORT INFORMATION
  Report Type: Spontaneous
  Country: BR (occurrence: BR)
  Receive Date: 20130809
  Receipt Date: 20130813
  Transmission Date: 20140515
  Serious: Yes (Hospitalization, Other)
  Sender: FDA-Public Use
  Company Number: BR-JNJFOC-20130802497

PATIENT
  Age: 23 Year
  Sex: Female

DRUGS (4)
  1. REMICADE [Suspect]
     Indication: CROHN^S DISEASE
     Dosage: 40 DAYS PRIOR TO THE DATE OF REPORT
     Route: 042
     Dates: start: 2013
  2. REMICADE [Suspect]
     Indication: CROHN^S DISEASE
     Route: 042
  3. REMICADE [Suspect]
     Indication: COLITIS ULCERATIVE
     Dosage: 40 DAYS PRIOR TO THE DATE OF REPORT
     Route: 042
     Dates: start: 2013
  4. REMICADE [Suspect]
     Indication: COLITIS ULCERATIVE
     Route: 042

REACTIONS (2)
  - Guillain-Barre syndrome [Not Recovered/Not Resolved]
  - Quadriparesis [Not Recovered/Not Resolved]
